APPROVED DRUG PRODUCT: ALLZITAL
Active Ingredient: ACETAMINOPHEN; BUTALBITAL
Strength: 325MG;25MG
Dosage Form/Route: TABLET;ORAL
Application: A203484 | Product #001 | TE Code: AA
Applicant: PHARMOBEDIENT CONSULTING LLC
Approved: Dec 4, 2015 | RLD: No | RS: Yes | Type: RX